FAERS Safety Report 7299620-9 (Version None)
Quarter: 2011Q1

REPORT INFORMATION
  Report Type: 
  Country: None (occurrence: None)
  Receive Date: 20110217
  Receipt Date: 20110209
  Transmission Date: 20110831
  Serious: Yes (Hospitalization)
  Sender: FDA-Public Use
  Company Number: US-CTI_01314_2011

PATIENT
  Sex: Male

DRUGS (1)
  1. XYFLO [Suspect]
     Indication: PRODUCT USED FOR UNKNOWN INDICATION
     Dosage: DF
     Dates: start: 20080101

REACTIONS (4)
  - COMA [None]
  - PARALYSIS [None]
  - HALLUCINATION [None]
  - MENTAL STATUS CHANGES [None]
